FAERS Safety Report 6100945-0 (Version None)
Quarter: 2009Q1

REPORT INFORMATION
  Report Type: 
  Country: None (occurrence: None)
  Receive Date: 20090226
  Receipt Date: 20090212
  Transmission Date: 20090719
  Serious: Yes (Other)
  Sender: FDA-Public Use
  Company Number: 2009169732

PATIENT
  Sex: Female

DRUGS (1)
  1. FRAGMIN [Suspect]
     Dosage: 5000 IU

REACTIONS (3)
  - ARACHNOIDITIS [None]
  - BEDRIDDEN [None]
  - NERVE INJURY [None]
